FAERS Safety Report 14200346 (Version 1)
Quarter: 2017Q4

REPORT INFORMATION
  Report Type: Spontaneous
  Country: US (occurrence: US)
  Receive Date: 20171117
  Receipt Date: 20171117
  Transmission Date: 20180321
  Serious: Yes (Hospitalization)
  Sender: FDA-Public Use
  Company Number: US-NOVOPROD-517476

PATIENT
  Age: 70 Year
  Sex: Female
  Weight: 73.47 kg

DRUGS (3)
  1. LEVEMIR [Concomitant]
     Active Substance: INSULIN DETEMIR
     Indication: TYPE 1 DIABETES MELLITUS
     Dosage: 25 U, QD
     Route: 058
  2. NOVOLOG [Suspect]
     Active Substance: INSULIN ASPART
     Indication: TYPE 1 DIABETES MELLITUS
     Dosage: BASED ON CARB INTAKE
     Route: 058
     Dates: start: 2012
  3. NOVOLOG [Suspect]
     Active Substance: INSULIN ASPART
     Dosage: BASED ON CARB INTAKE
     Route: 058
     Dates: start: 2016

REACTIONS (2)
  - Diabetic ketoacidosis [Recovered/Resolved]
  - Blood glucose increased [Recovered/Resolved]

NARRATIVE: CASE EVENT DATE: 20160628
